FAERS Safety Report 14982687 (Version 9)
Quarter: 2019Q4

REPORT INFORMATION
  Report Type: Spontaneous
  Country: JP (occurrence: JP)
  Receive Date: 20180607
  Receipt Date: 20191220
  Transmission Date: 20200122
  Serious: Yes (Hospitalization, Other)
  Sender: FDA-Public Use
  Company Number: JP-BIOVITRUM-2016JP0950

PATIENT
  Age: 1 Month
  Sex: Male
  Weight: 4 kg

DRUGS (12)
  1. ORFADIN [Suspect]
     Active Substance: NITISINONE
     Route: 048
     Dates: start: 20160902, end: 20161014
  2. URSO [Concomitant]
     Active Substance: URSODIOL
     Route: 048
     Dates: start: 20160901
  3. BAKTAR [Concomitant]
     Active Substance: SULFAMETHOXAZOLE\TRIMETHOPRIM
     Route: 048
     Dates: start: 20160901, end: 20170809
  4. ORFADIN [Suspect]
     Active Substance: NITISINONE
     Route: 048
     Dates: start: 20180802
  5. NEXIUM [Concomitant]
     Active Substance: ESOMEPRAZOLE MAGNESIUM
     Route: 048
     Dates: start: 20160901
  6. VICCLOX [Concomitant]
     Active Substance: ACYCLOVIR SODIUM
     Route: 048
     Dates: start: 20160901
  7. PREDNISOLONE. [Concomitant]
     Active Substance: PREDNISOLONE
     Route: 048
     Dates: start: 20160901
  8. TAURINE [Concomitant]
     Active Substance: TAURINE
     Route: 048
     Dates: start: 20160817, end: 20160826
  9. PROGRAF [Concomitant]
     Active Substance: TACROLIMUS
     Dates: start: 20160826
  10. PIARLE [Concomitant]
     Active Substance: LACTULOSE
     Dates: start: 20160815, end: 20160826
  11. ORFADIN [Suspect]
     Active Substance: NITISINONE
     Indication: TYROSINAEMIA
     Route: 048
     Dates: start: 20160819, end: 20160901
  12. ORFADIN [Suspect]
     Active Substance: NITISINONE
     Route: 048
     Dates: start: 20161015, end: 20180801

REACTIONS (7)
  - Blood alkaline phosphatase increased [Recovered/Resolved]
  - Gamma-glutamyltransferase increased [Recovered/Resolved]
  - Bile duct stenosis [Recovered/Resolved]
  - Liver transplant [Unknown]
  - Hypokalaemia [Recovered/Resolved]
  - Amino acid level increased [Not Recovered/Not Resolved]
  - Off label use [Unknown]

NARRATIVE: CASE EVENT DATE: 201608
